FAERS Safety Report 7409398-3 (Version None)
Quarter: 2011Q2

REPORT INFORMATION
  Report Type: 
  Country: None (occurrence: None)
  Receive Date: 20110412
  Receipt Date: 20110223
  Transmission Date: 20111010
  Serious: Yes (Other)
  Sender: FDA-Public Use
  Company Number: US-BAYER-200943573NA

PATIENT
  Age: 55 Year
  Sex: Male
  Weight: 97.506 kg

DRUGS (25)
  1. SIMVASTATIN [Concomitant]
     Route: 048
  2. AMLODIPINE [Concomitant]
     Route: 048
  3. ATROPINE [Concomitant]
     Dosage: 0.4 MG, UNK
     Route: 042
     Dates: start: 20040210, end: 20040210
  4. BUMEX [Concomitant]
     Dosage: 1 MG, PRN
     Dates: start: 20040212
  5. ACETYLSALICYLIC ACID SRT [Concomitant]
     Route: 048
  6. ANCEF [Concomitant]
     Dosage: 2 G, UNK
     Route: 042
     Dates: start: 20040210
  7. EPINEPHRINE [Concomitant]
     Dosage: DRIP
     Route: 042
     Dates: start: 20040210, end: 20040210
  8. AMIODARONE [Concomitant]
     Dosage: UNK
     Route: 048
  9. AMIODARONE [Concomitant]
     Dosage: 150 MG, BOLUS THEN DRIP
     Route: 042
     Dates: start: 20040210
  10. VASOPRESSIN [Concomitant]
     Dosage: UNK
     Route: 042
     Dates: start: 20040210
  11. PLATELETS [Concomitant]
     Dosage: 2 U, UNK
     Dates: start: 20040210
  12. HEPARIN [Concomitant]
     Dosage: 5000 U, UNK
     Route: 042
     Dates: start: 20040210, end: 20040210
  13. MAGNESIUM SULFATE [Concomitant]
     Dosage: 2 G, BID
     Route: 042
     Dates: start: 20040210, end: 20040210
  14. PROTAMINE SULFATE [Concomitant]
     Dosage: 200 MG, UNK
     Route: 042
     Dates: start: 20040210, end: 20040210
  15. BUMEX [Concomitant]
     Dosage: UNK
     Dates: start: 20040211
  16. METOPROLOL TARTRATE [Concomitant]
     Route: 048
  17. CLONIDINE [Concomitant]
     Route: 048
  18. NEXIUM [Concomitant]
     Route: 048
  19. PROTAMINE SULFATE [Concomitant]
     Dosage: 50 MG, BID
     Route: 042
     Dates: start: 20040210, end: 20040210
  20. PLASMA [Concomitant]
     Dosage: 4 U, UNK
     Dates: start: 20040210
  21. TRASYLOL [Suspect]
     Indication: CARDIAC OPERATION
     Dosage: 200 ML, OVER 30 MINUTES
     Route: 042
     Dates: start: 20040210, end: 20040210
  22. TRASYLOL [Suspect]
     Indication: AORTIC DISSECTION
     Dosage: 50ML/HR
     Route: 042
     Dates: start: 20040210, end: 20040210
  23. TRASYLOL [Suspect]
     Dosage: 200ML, PUMP PRIME
     Route: 042
     Dates: start: 20040210, end: 20040210
  24. LIDOCAINE [Concomitant]
     Dosage: 100 MG, UNK
     Dates: start: 20040210, end: 20040210
  25. RED BLOOD CELLS [Concomitant]
     Dosage: 4 U, UNK
     Route: 042
     Dates: start: 20040210

REACTIONS (4)
  - PAIN [None]
  - INJURY [None]
  - UNEVALUABLE EVENT [None]
  - RENAL FAILURE [None]
